FAERS Safety Report 4917724-X (Version None)
Quarter: 2006Q1

REPORT INFORMATION
  Report Type: 
  Country: None (occurrence: None)
  Receive Date: 20060221
  Receipt Date: 19980716
  Transmission Date: 20060701
  Serious: Yes (Life-Threatening, Hospitalization, Other)
  Sender: FDA-Public Use
  Company Number: US-1998-UP-00203

PATIENT
  Sex: Male

DRUGS (8)
  1. PRAMIPEXOLE DIHYDROCHLORIDE [Suspect]
     Indication: PARKINSON'S DISEASE
     Route: 048
     Dates: start: 19970415, end: 20010711
  2. VOLTAREN [Concomitant]
     Dates: start: 19970404
  3. ELDEPRYL [Concomitant]
     Dates: start: 19960101, end: 19980101
  4. PROSCAR [Concomitant]
     Dates: start: 19960614
  5. TRENTAL [Concomitant]
     Dates: start: 19961129
  6. TOPICAL RX FOR PSORIASIS [Concomitant]
     Indication: PSORIASIS
     Dates: start: 19970423
  7. SYMMETRYL [Concomitant]
     Dates: start: 19960415, end: 19971107
  8. CARDURA [Concomitant]
     Dates: start: 19960614, end: 19971112

REACTIONS (5)
  - BASAL CELL CARCINOMA [None]
  - LUMBAR RADICULOPATHY [None]
  - ROAD TRAFFIC ACCIDENT [None]
  - SOMNOLENCE [None]
  - SUDDEN ONSET OF SLEEP [None]
